FAERS Safety Report 24700829 (Version 1)
Quarter: 2024Q4

REPORT INFORMATION
  Report Type: Spontaneous
  Country: US (occurrence: None)
  Receive Date: 20241204
  Receipt Date: 20241204
  Transmission Date: 20250115
  Serious: Yes (Hospitalization)
  Sender: Public
  Company Number: None

PATIENT
  Sex: Female

DRUGS (2)
  1. NIVESTYM [Suspect]
     Active Substance: FILGRASTIM-AAFI
     Indication: Myelodysplastic syndrome
     Dosage: OTHER STRENGTH : 300/0.5 UG;?OTHER FREQUENCY : DAILY ON DAYS 6,7,8 AND 9 OF 28 D CYCLE;?
     Route: 058
     Dates: start: 202311
  2. INQOVI [Concomitant]
     Active Substance: CEDAZURIDINE\DECITABINE

REACTIONS (1)
  - Lung disorder [None]
